FAERS Safety Report 7769347-5 (Version None)
Quarter: 2011Q3

REPORT INFORMATION
  Report Type: 
  Country: None (occurrence: None)
  Receive Date: 20110922
  Receipt Date: 20110921
  Transmission Date: 20111222
  Serious: Yes (Other)
  Sender: FDA-Public Use
  Company Number: JP-PFIZER INC-2011223679

PATIENT
  Age: 71 Year
  Sex: Male

DRUGS (3)
  1. RHEUMATREX [Suspect]
     Dosage: UNK
     Route: 048
     Dates: start: 20060501, end: 20090501
  2. AZULFIDINE [Suspect]
     Dosage: UNK
     Route: 048
     Dates: start: 20060501, end: 20090501
  3. ENBREL [Suspect]
     Dosage: UNK
     Route: 058
     Dates: start: 20090301, end: 20090501

REACTIONS (1)
  - INTERSTITIAL LUNG DISEASE [None]
